FAERS Safety Report 5230518-3 (Version None)
Quarter: 2007Q1

REPORT INFORMATION
  Report Type: 
  Country: None (occurrence: None)
  Receive Date: 20070202
  Receipt Date: 20070123
  Transmission Date: 20070707
  Serious: Yes (Hospitalization, Other)
  Sender: FDA-Public Use
  Company Number: 2007SP001453

PATIENT
  Age: 53 Year
  Sex: Female
  Weight: 99 kg

DRUGS (1)
  1. PEG-INTRON [Suspect]
     Indication: MULTIPLE MYELOMA
     Dosage: 15 MCG; QW; SC
     Route: 058
     Dates: start: 20030616, end: 20060912

REACTIONS (2)
  - LEUKOENCEPHALOPATHY [None]
  - PARKINSONISM [None]
